FAERS Safety Report 4341005-9 (Version None)
Quarter: 2004Q2

REPORT INFORMATION
  Report Type: 
  Country: None (occurrence: None)
  Receive Date: 20040413
  Receipt Date: 20040402
  Transmission Date: 20050107
  Serious: Yes (Other)
  Sender: FDA-Public Use
  Company Number: 430007X04GBR

PATIENT
  Age: 44 Year
  Sex: Male

DRUGS (3)
  1. NOVANTRONE [Suspect]
     Dates: start: 20040301
  2. CHLORAMBUCIL [Suspect]
  3. DEXAMETHASONE [Suspect]

REACTIONS (7)
  - ARTERIAL OCCLUSIVE DISEASE [None]
  - ARTERIAL THROMBOSIS [None]
  - INSOMNIA [None]
  - LIVEDO RETICULARIS [None]
  - PAIN IN EXTREMITY [None]
  - PERIPHERAL COLDNESS [None]
  - PULSE ABSENT [None]
